FAERS Safety Report 9159628 (Version 1)
Quarter: 2013Q1

REPORT INFORMATION
  Report Type: Spontaneous
  Country: ZA (occurrence: None)
  Receive Date: 20130219
  Receipt Date: 20130219
  Transmission Date: 20140127
  Serious: No
  Sender: FDA-Public Use
  Company Number: B0867957A

PATIENT
  Age: 32 Year
  Sex: Female

DRUGS (3)
  1. LAMIVUDINE [Suspect]
     Indication: HIV INFECTION
  2. STAVUDINE [Suspect]
     Indication: HIV INFECTION
  3. CO-TRIMOXAZOLE [Concomitant]

REACTIONS (7)
  - Immune reconstitution inflammatory syndrome [None]
  - Vitritis [None]
  - Uveitis [None]
  - Cryptococcosis [None]
  - Scleritis [None]
  - Cryptococcal cutaneous infection [None]
  - Eye infection fungal [None]
